FAERS Safety Report 12060893 (Version 2)
Quarter: 2017Q2

REPORT INFORMATION
  Report Type: Report from Study
  Country: US (occurrence: US)
  Receive Date: 20160210
  Receipt Date: 20170425
  Transmission Date: 20170829
  Serious: Yes (Life-Threatening, Hospitalization)
  Sender: FDA-Public Use
  Company Number: US-AMGEN-USACT2015138694

PATIENT
  Age: 2 Year
  Sex: Male

DRUGS (15)
  1. AMPHOJEL [Concomitant]
     Active Substance: ALUMINUM HYDROXIDE
     Dosage: 128 MG, UNK
     Route: 048
     Dates: start: 20151028, end: 20151103
  2. SEPTRA [Concomitant]
     Active Substance: SULFAMETHOXAZOLE\TRIMETHOPRIM
     Dosage: 5 ML, UNK
     Route: 048
     Dates: start: 20151030, end: 20151102
  3. METHOTREXATE. [Concomitant]
     Active Substance: METHOTREXATE
     Dosage: 10 MG, UNK
     Dates: start: 20151106, end: 20151106
  4. LORAZEPAM. [Concomitant]
     Active Substance: LORAZEPAM
     Dosage: 0.5 MG, UNK
     Route: 048
     Dates: start: 20151101
  5. ONDANSETRON [Concomitant]
     Active Substance: ONDANSETRON
     Dosage: 2 MG, UNK
     Route: 048
     Dates: start: 20151029
  6. MORPHINE [Concomitant]
     Active Substance: MORPHINE
     Dosage: 1-1.4 MG, UNK
     Route: 042
     Dates: start: 20151031, end: 20151122
  7. PENTAMIDINE [Concomitant]
     Active Substance: PENTAMIDINE
     Dosage: 59 MG, UNK
     Route: 042
     Dates: start: 20151018
  8. CARFILZOMIB [Suspect]
     Active Substance: CARFILZOMIB
     Indication: ACUTE LYMPHOCYTIC LEUKAEMIA
     Dosage: 16 MG, PER CHEMO REGIM
     Route: 042
     Dates: start: 20151030
  9. PEG/L-ASPARAGINASE [Suspect]
     Active Substance: PEGASPARGASE
     Indication: ACUTE LYMPHOCYTIC LEUKAEMIA
     Dosage: 580-590 UNK, UNK
     Route: 065
     Dates: start: 20151108, end: 20151127
  10. VINCRISTINE [Suspect]
     Active Substance: VINCRISTINE
     Indication: ACUTE LYMPHOCYTIC LEUKAEMIA
     Dosage: 0.9 MG, UNK
     Route: 065
     Dates: start: 20151108, end: 20151203
  11. DEXAMETHASONE. [Concomitant]
     Active Substance: DEXAMETHASONE
     Dosage: 1.8-12 MG, UNK
     Dates: start: 20151030, end: 20151128
  12. ALLOPURINOL. [Concomitant]
     Active Substance: ALLOPURINOL
     Dosage: 60 MG, UNK
     Route: 048
     Dates: start: 20151028, end: 20151102
  13. MICAFUNGIN [Concomitant]
     Active Substance: MICAFUNGIN
     Dosage: 13-43 MG, UNK
     Route: 042
     Dates: start: 20151028, end: 20151123
  14. MITOXANTRONE [Suspect]
     Active Substance: MITOXANTRONE HYDROCHLORIDE
     Indication: ACUTE LYMPHOCYTIC LEUKAEMIA
     Dosage: 6 MG, UNK
     Route: 065
     Dates: start: 20151106, end: 20151107
  15. LEVOFLOXACIN. [Concomitant]
     Active Substance: LEVOFLOXACIN
     Dosage: 130 MG, UNK
     Route: 048
     Dates: start: 20151029, end: 20151117

REACTIONS (3)
  - Sepsis [Recovered/Resolved]
  - Stomatococcal infection [Recovered/Resolved]
  - Abdominal pain [Recovered/Resolved]

NARRATIVE: CASE EVENT DATE: 20151111
